FAERS Safety Report 4646857-0 (Version None)
Quarter: 2005Q2

REPORT INFORMATION
  Report Type: 
  Country: None (occurrence: None)
  Receive Date: 20050331
  Receipt Date: 20050119
  Transmission Date: 20051028
  Serious: No
  Sender: FDA-Public Use
  Company Number: 05P-163-0287263-00

PATIENT
  Age: 23 Year
  Sex: Female
  Weight: 49.8957 kg

DRUGS (2)
  1. HUMIRA [Suspect]
     Indication: RHEUMATOID ARTHRITIS
     Dosage: 40 MG, 1 IN 2 WK, SUBCUTANEOUS
     Route: 058
     Dates: start: 20041001, end: 20050113
  2. LEXAPRO [Concomitant]

REACTIONS (5)
  - DEHYDRATION [None]
  - PULMONARY CONGESTION [None]
  - PYREXIA [None]
  - RASH [None]
  - VOMITING [None]
